FAERS Safety Report 8831041 (Version 1)
Quarter: 2012Q4

REPORT INFORMATION
  Report Type: 
  Country: US (occurrence: US)
  Receive Date: 20121009
  Receipt Date: 20121009
  Transmission Date: 20130627
  Serious: Yes (Other)
  Sender: FDA-Public Use
  Company Number: US-PFIZER INC-2012243474

PATIENT
  Age: 72 Year
  Sex: Female
  Weight: 74 kg

DRUGS (14)
  1. ARTHROTEC [Suspect]
     Indication: ARTHRITIS
     Dosage: 75 mg, 2x/day
     Route: 048
  2. ARTHROTEC [Suspect]
     Indication: OSTEOPOROSIS
  3. CELEBREX [Suspect]
     Indication: ARTHRITIS
     Dosage: UNK
     Dates: end: 2012
  4. CELEBREX [Suspect]
     Indication: OSTEOPOROSIS
  5. DICLOFENAC [Suspect]
     Indication: ARTHRITIS
     Dosage: UNK
     Dates: end: 2012
  6. DICLOFENAC [Suspect]
     Indication: OSTEOPOROSIS
  7. PRILOSEC [Concomitant]
     Dosage: UNK
  8. ZOCOR [Concomitant]
     Indication: BLOOD CHOLESTEROL INCREASED
     Dosage: UNK
  9. ZANAFLEX [Concomitant]
     Dosage: 4 mg, UNK
  10. SYNTHROID [Concomitant]
     Dosage: UNK
  11. TOPROL XL [Concomitant]
     Dosage: UNK
  12. ASPIRIN [Concomitant]
     Dosage: UNK
  13. AMBIEN [Concomitant]
     Dosage: UNK
  14. LORAZEPAM [Concomitant]
     Dosage: UNK

REACTIONS (10)
  - Hyperthyroidism [Unknown]
  - Hip arthroplasty [Unknown]
  - Drug ineffective [Unknown]
  - Gastric disorder [Unknown]
  - Drug intolerance [Unknown]
  - Back disorder [Unknown]
  - Vomiting [Unknown]
  - Activities of daily living impaired [Unknown]
  - Body height decreased [Unknown]
  - Weight decreased [Unknown]
